FAERS Safety Report 21811404 (Version 3)
Quarter: 2023Q2

REPORT INFORMATION
  Report Type: Spontaneous
  Country: IT (occurrence: IT)
  Receive Date: 20230103
  Receipt Date: 20230420
  Transmission Date: 20230722
  Serious: Yes (Other)
  Sender: FDA-Public Use
  Company Number: IT-MLMSERVICE-20221223-3992818-1

PATIENT
  Age: 31 Year
  Sex: Female

DRUGS (4)
  1. DOXORUBICIN HYDROCHLORIDE [Suspect]
     Active Substance: DOXORUBICIN HYDROCHLORIDE
     Indication: Hodgkin^s disease
     Dosage: UNK
     Route: 042
  2. BLEOMYCIN [Suspect]
     Active Substance: BLEOMYCIN SULFATE
     Indication: Hodgkin^s disease
     Dosage: UNK
     Route: 042
  3. DACARBAZINE [Suspect]
     Active Substance: DACARBAZINE
     Indication: Hodgkin^s disease
     Dosage: UNK
     Route: 042
  4. VINBLASTINE [Suspect]
     Active Substance: VINBLASTINE
     Indication: Hodgkin^s disease
     Dosage: UNK
     Route: 042

REACTIONS (11)
  - Drug monitoring procedure incorrectly performed [Unknown]
  - Infusion site joint movement impairment [Unknown]
  - Infusion site hypoaesthesia [Unknown]
  - Infusion site scar [Unknown]
  - Infusion site extravasation [Recovered/Resolved with Sequelae]
  - Infusion site necrosis [Recovered/Resolved with Sequelae]
  - Grip strength decreased [Unknown]
  - Infusion site oedema [Unknown]
  - Infusion site pain [Unknown]
  - Infusion site erythema [Unknown]
  - Infusion site ulcer [Recovered/Resolved with Sequelae]
